FAERS Safety Report 23383199 (Version 1)
Quarter: 2024Q1

REPORT INFORMATION
  Report Type: Spontaneous
  Country: ES (occurrence: ES)
  Receive Date: 20240109
  Receipt Date: 20240109
  Transmission Date: 20240410
  Serious: Yes (Life-Threatening, Other)
  Sender: FDA-Public Use
  Company Number: ES-AMGEN-ESPSP2023162980

PATIENT
  Age: 34 Year
  Sex: Male

DRUGS (19)
  1. FILGRASTIM [Suspect]
     Active Substance: FILGRASTIM
     Indication: Prophylaxis
     Dosage: UNK, CYCLICAL
     Route: 065
     Dates: start: 201808
  2. PEGFILGRASTIM [Suspect]
     Active Substance: PEGFILGRASTIM
     Indication: Prophylaxis
     Dosage: UNK, CYCLICAL
     Route: 065
  3. CYCLOPHOSPHAMIDE [Concomitant]
     Active Substance: CYCLOPHOSPHAMIDE
     Indication: Desmoplastic small round cell tumour
     Dosage: 2100 MILLIGRAM/SQ. METER, D1-2 , Q3WK
     Route: 065
     Dates: start: 20230808
  4. CYCLOPHOSPHAMIDE [Concomitant]
     Active Substance: CYCLOPHOSPHAMIDE
     Dosage: 25 MILLIGRAM/SQ. METER,(D1-28) EVERY 28 DAYS
     Route: 048
     Dates: start: 20211228, end: 20220313
  5. CYCLOPHOSPHAMIDE [Concomitant]
     Active Substance: CYCLOPHOSPHAMIDE
     Dosage: 250 MILLIGRAM/SQ. METER, DAYS 1-5, Q3WK
     Route: 065
     Dates: start: 202103
  6. DOCETAXEL [Concomitant]
     Active Substance: DOCETAXEL\DOCETAXEL ANHYDROUS
     Indication: Desmoplastic small round cell tumour
     Dosage: 75 MILLIGRAM/SQ. METER, DAY 8, Q3WK
     Route: 065
     Dates: start: 202107
  7. DOXORUBICIN [Concomitant]
     Active Substance: DOXORUBICIN
     Indication: Desmoplastic small round cell tumour
     Dosage: 25 MILLIGRAM/SQ. METER,  DL-3
     Route: 065
     Dates: start: 20180808
  8. ETOPOSIDE [Concomitant]
     Active Substance: ETOPOSIDE
     Indication: Desmoplastic small round cell tumour
     Dosage: 1.8 MILLIGRAM/SQ. METER, D1-5, Q3WK
     Route: 065
     Dates: start: 201902
  9. GEMCITABINE [Concomitant]
     Active Substance: GEMCITABINE
     Indication: Desmoplastic small round cell tumour
     Dosage: 900 MILLIGRAM/SQ. METER, DAYS 1 AND 8, Q3WK
     Route: 065
     Dates: start: 202107
  10. IFOSFAMIDE [Concomitant]
     Active Substance: IFOSFAMIDE
     Indication: Desmoplastic small round cell tumour
     Dosage: 100 MILLIGRAM/SQ. METER, Q3WK
     Route: 065
     Dates: start: 201902
  11. IRINOTECAN [Concomitant]
     Active Substance: IRINOTECAN
     Indication: Desmoplastic small round cell tumour
     Dosage: 20 MILLIGRAM/SQ. METER, D1-5, Q3WK
     Route: 065
     Dates: start: 201904
  12. PAZOPANIB [Concomitant]
     Active Substance: PAZOPANIB
     Indication: Desmoplastic small round cell tumour
     Dosage: 800 MILLIGRAM, QD
     Route: 065
     Dates: start: 202010
  13. TEMOZOLOMIDE [Concomitant]
     Active Substance: TEMOZOLOMIDE
     Indication: Desmoplastic small round cell tumour
     Dosage: 100 MILLIGRAM/SQ. METER, D1-5, Q3WK
     Route: 065
     Dates: start: 201904
  14. TOPOTECAN [Concomitant]
     Active Substance: TOPOTECAN HYDROCHLORIDE
     Indication: Desmoplastic small round cell tumour
     Dosage: 0.75 MILLIGRAM/SQ. METER, D1-5, Q3WK
     Route: 065
     Dates: start: 202103
  15. TRABECTEDIN [Concomitant]
     Active Substance: TRABECTEDIN
     Dosage: 1.2 MILLIGRAM/SQ. METER, CYCLICAL
     Route: 065
     Dates: start: 201907
  16. TRABECTEDIN [Concomitant]
     Active Substance: TRABECTEDIN
     Dosage: 1.5 MILLIGRAM/SQ. METER, CYCLICAL
     Route: 065
     Dates: start: 201907
  17. TRABECTEDIN [Concomitant]
     Active Substance: TRABECTEDIN
     Indication: Desmoplastic small round cell tumour
     Dosage: UNK MILLIGRAM/SQ. METER, CYCLICAL
     Route: 065
     Dates: start: 201909, end: 202009
  18. VINCRISTINE [Concomitant]
     Active Substance: VINCRISTINE
     Indication: Desmoplastic small round cell tumour
     Dosage: 0.67 MILLIGRAM/SQ. METER D1-3, CYCLICAL
     Route: 065
     Dates: start: 20180808
  19. VINORELBINE [Concomitant]
     Active Substance: VINORELBINE TARTRATE
     Indication: Desmoplastic small round cell tumour
     Dosage: 25 MILLIGRAM/SQ. METER, DAYS 1 AND 8 , CYCLICAL
     Route: 065
     Dates: start: 20211228, end: 20220313

REACTIONS (6)
  - Febrile neutropenia [Unknown]
  - Thrombocytopenia [Unknown]
  - Desmoplastic small round cell tumour [Unknown]
  - Neutropenia [Unknown]
  - Biliary sepsis [Unknown]
  - Drug ineffective [Unknown]

NARRATIVE: CASE EVENT DATE: 20180801
